FAERS Safety Report 6289349-8 (Version None)
Quarter: 2009Q3

REPORT INFORMATION
  Report Type: 
  Country: None (occurrence: None)
  Receive Date: 20090723
  Receipt Date: 20090723
  Transmission Date: 20100115
  Serious: Yes (Life-Threatening, Other)
  Sender: FDA-Public Use
  Company Number: None

PATIENT
  Sex: Male
  Weight: 30.7 kg

DRUGS (5)
  1. SINGULAIR [Suspect]
     Indication: ASTHMA
     Dosage: 5MG ONCE DAILY PO
     Route: 048
     Dates: start: 20090413, end: 20090708
  2. SINGULAIR [Suspect]
     Indication: RHINITIS ALLERGIC
     Dosage: 5MG ONCE DAILY PO
     Route: 048
     Dates: start: 20090413, end: 20090708
  3. ADVAIR HFA [Concomitant]
  4. VERAMYST [Concomitant]
  5. SINGULAIR [Concomitant]

REACTIONS (2)
  - DEPRESSED MOOD [None]
  - SUICIDAL IDEATION [None]
